FAERS Safety Report 18497609 (Version 1)
Quarter: 2020Q4

REPORT INFORMATION
  Report Type: Spontaneous
  Country: US (occurrence: US)
  Receive Date: 20201112
  Receipt Date: 20201112
  Transmission Date: 20210114
  Serious: No
  Sender: FDA-Public Use
  Company Number: US-SA-2020SA318156

PATIENT

DRUGS (1)
  1. DUPIXENT [Suspect]
     Active Substance: DUPILUMAB
     Indication: NASAL POLYPS
     Dosage: 1 DF, QOW
     Route: 058
     Dates: start: 202002, end: 202010

REACTIONS (2)
  - Coronavirus test positive [Recovered/Resolved]
  - Therapy interrupted [Unknown]

NARRATIVE: CASE EVENT DATE: 20201019
